FAERS Safety Report 4719820-9 (Version None)
Quarter: 2005Q3

REPORT INFORMATION
  Report Type: 
  Country: None (occurrence: None)
  Receive Date: 20050721
  Receipt Date: 20041117
  Transmission Date: 20060218
  Serious: No
  Sender: FDA-Public Use
  Company Number: US-GLAXOSMITHKLINE-A0534325A

PATIENT
  Age: 71 Year
  Sex: Male
  Weight: 70.5 kg

DRUGS (4)
  1. AVANDIA [Suspect]
     Dosage: 4MG PER DAY
     Route: 048
  2. GLIPIZIDE [Concomitant]
  3. ASPIRIN [Concomitant]
  4. IBUPROFEN [Concomitant]

REACTIONS (2)
  - HYPERGLYCAEMIA [None]
  - PHARMACEUTICAL PRODUCT COMPLAINT [None]
